FAERS Safety Report 8121252-0 (Version None)
Quarter: 2012Q1

REPORT INFORMATION
  Report Type: 
  Country: None (occurrence: None)
  Receive Date: 20120208
  Receipt Date: 20120128
  Transmission Date: 20120608
  Serious: Yes (Other)
  Sender: FDA-Public Use
  Company Number: US-MYLANLABS-2012S1002239

PATIENT
  Age: 20 Year
  Sex: Female

DRUGS (3)
  1. CLARAVIS [Suspect]
     Dates: start: 20111205
  2. ORAL CONTRACEPTIVE NOS [Concomitant]
     Indication: CONTRACEPTION
     Route: 048
  3. AMNESTEEM [Suspect]
     Dates: end: 20120101

REACTIONS (2)
  - HEADACHE [None]
  - MATERNAL EXPOSURE DURING PREGNANCY [None]
